FAERS Safety Report 10971332 (Version 3)
Quarter: 2015Q2

REPORT INFORMATION
  Report Type: Report from Study
  Country: CA (occurrence: CA)
  Receive Date: 20150331
  Receipt Date: 20150410
  Transmission Date: 20150821
  Serious: Yes (Hospitalization)
  Sender: FDA-Public Use
  Company Number: CA-JNJFOC-20140100679

PATIENT
  Age: 44 Year
  Sex: Female
  Weight: 72.5 kg

DRUGS (2)
  1. REMICADE [Suspect]
     Active Substance: INFLIXIMAB
     Indication: CROHN^S DISEASE
     Route: 042
     Dates: start: 20101118
  2. METHOTREXATE [Concomitant]
     Active Substance: METHOTREXATE
     Route: 065

REACTIONS (4)
  - Breast cancer [Unknown]
  - Breast operation [Unknown]
  - Breast cancer recurrent [Unknown]
  - Mastectomy [Recovered/Resolved]

NARRATIVE: CASE EVENT DATE: 201312
